FAERS Safety Report 24012468 (Version 3)
Quarter: 2024Q3

REPORT INFORMATION
  Report Type: Spontaneous
  Country: IT (occurrence: IT)
  Receive Date: 20240625
  Receipt Date: 20240805
  Transmission Date: 20241017
  Serious: Yes (Other)
  Sender: ALEXION PHARMACEUTICALS
  Company Number: IT-AstraZeneca-CH-00649822A

PATIENT
  Sex: Female

DRUGS (1)
  1. ULTOMIRIS [Suspect]
     Active Substance: RAVULIZUMAB-CWVZ
     Indication: Paroxysmal nocturnal haemoglobinuria
     Dosage: UNK
     Route: 042

REACTIONS (2)
  - Breakthrough haemolysis [Recovered/Resolved]
  - Infection [Recovered/Resolved]
